FAERS Safety Report 7693283-6 (Version None)
Quarter: 2011Q3

REPORT INFORMATION
  Report Type: 
  Country: None (occurrence: None)
  Receive Date: 20110819
  Receipt Date: 20110810
  Transmission Date: 20111222
  Serious: Yes (Hospitalization, Other)
  Sender: FDA-Public Use
  Company Number: PHEH2007US04665

PATIENT
  Sex: Female
  Weight: 62.585 kg

DRUGS (94)
  1. PREDNISONE [Concomitant]
     Dosage: 15 MG, QD
     Dates: start: 19860101
  2. BELLERGAL [Concomitant]
  3. ZYVOX [Concomitant]
  4. METHOTREXATE [Concomitant]
  5. LYRICA [Concomitant]
     Dates: start: 20080101
  6. TAGAMET [Concomitant]
  7. COMPAZINE [Concomitant]
  8. EXFORGE (VALSARTAN/AMLODIPINE BESILATE) [Concomitant]
     Dosage: 1 DF, UNK
  9. BEROCCA                                 /SCH/ [Concomitant]
  10. PROTONIX [Concomitant]
  11. VITAPLEX [Concomitant]
  12. AMANTADINE HCL [Concomitant]
  13. AVELOX [Concomitant]
  14. CIPROFLOXACIN [Concomitant]
     Dosage: 500 MG, UNK
  15. MOBIC [Concomitant]
     Dosage: 7.5 MG, PRN
  16. WELCHOL [Concomitant]
  17. PRAVACHOL [Concomitant]
  18. DARBEPOETIN ALFA [Concomitant]
  19. SPECTAZOLE [Concomitant]
  20. PRILOSEC [Concomitant]
  21. CALCIUM CITRATE [Concomitant]
  22. FLEXERIL [Concomitant]
     Dosage: 5 MG, UNK
  23. ROCEPHIN [Concomitant]
     Dosage: 2 G, QD
  24. CLINDAMYCIN [Concomitant]
     Dosage: 900 MG, Q8
  25. IMURAN [Concomitant]
     Dosage: 50 MG, QD
  26. VANCOMYCIN [Concomitant]
  27. ACTOS [Concomitant]
     Dosage: 30 MG, QD
  28. SALAGEN [Concomitant]
  29. VICODIN [Concomitant]
  30. MYCOSTATIN [Concomitant]
  31. DECADRON [Concomitant]
  32. ALLOPURINOL [Concomitant]
  33. CARAFATE [Concomitant]
  34. NEPHRO-VITE [Concomitant]
  35. ZOMETA [Suspect]
     Indication: OSTEOPOROSIS
  36. AREDIA [Suspect]
     Indication: OSTEOPOROSIS
     Route: 042
  37. COREG [Concomitant]
     Dosage: 3.125 MG, BID
  38. PLAQUENIL [Concomitant]
     Dosage: 200 MG, BID
  39. AMBIEN [Concomitant]
     Dosage: 12.5 MG, QHS
  40. DONNATAL [Concomitant]
     Dosage: 1 DF, QD
  41. NEXIUM [Concomitant]
     Dosage: 40 MG, BID
  42. PERCOCET [Concomitant]
  43. FORTEO [Concomitant]
     Dosage: 750 UG, DAILY AM
  44. LASIX [Concomitant]
     Dosage: 20 MG, UNK
  45. AUGMENTIN '125' [Concomitant]
  46. CEFTIN [Concomitant]
     Dosage: 500 MG, UNK
  47. EVISTA [Concomitant]
     Dosage: 60 MG, UNK
  48. ZOCOR [Concomitant]
  49. SOL MEDROL [Concomitant]
  50. DIPRIVAN [Concomitant]
  51. CLEOCIN HYDROCHLORIDE [Concomitant]
  52. DIFLUCAN [Concomitant]
     Dosage: 100 MG, UNK
  53. BACTROBAN                               /NET/ [Concomitant]
  54. NORVASC [Concomitant]
  55. AVANDIA [Concomitant]
     Dosage: 2 MG, QD
  56. ASPIRIN [Concomitant]
     Dosage: 325 MG, QD
  57. ANZEMET [Concomitant]
  58. PERIDEX [Concomitant]
  59. CYTOXAN [Concomitant]
     Indication: SYSTEMIC LUPUS ERYTHEMATOSUS
  60. ASACOL [Concomitant]
     Dosage: 1200 MG, TID
  61. DILAUDID [Concomitant]
  62. PRANDIN ^KUHN^ [Concomitant]
  63. CALCITONIN SALMON [Concomitant]
  64. KEFLEX [Concomitant]
  65. SUDAFED 12 HOUR [Concomitant]
  66. MINOCYCLINE HCL [Concomitant]
  67. SINGULAIR [Concomitant]
     Dosage: 10 MG, UNK
  68. ZOFRAN [Concomitant]
     Dosage: 8 MG, PRN
  69. ANAGRELIDE HCL [Concomitant]
  70. BONIVA [Concomitant]
     Dates: start: 20070101
  71. BEXTRA [Concomitant]
     Dates: start: 20010101
  72. GAMIMUNE [Concomitant]
  73. FLOVENT [Concomitant]
  74. DARVOCET-N 50 [Concomitant]
  75. DEMEROL [Concomitant]
  76. LEVAQUIN [Concomitant]
  77. PROVIGIL [Concomitant]
  78. REGELAN [Concomitant]
  79. ALBUTEROL SULFATE AUTOHALER [Concomitant]
  80. FLONASE [Concomitant]
  81. ASPIRIN [Concomitant]
  82. LOMOTIL [Concomitant]
  83. CORTISONE ACETATE [Concomitant]
  84. INVANZ [Concomitant]
     Dosage: 1 G, DAILY
  85. ENBREL [Concomitant]
  86. MEPRON [Concomitant]
  87. FLAGYL [Concomitant]
  88. LIDODERM [Concomitant]
  89. MEFOXIN [Concomitant]
  90. KEFZOL [Concomitant]
  91. FAMVIR                                  /NET/ [Concomitant]
  92. OXYCODONE HCL [Concomitant]
  93. AGRYLIN [Concomitant]
     Indication: THROMBOCYTOPENIA
     Dosage: 0.5 MG, BID
  94. PREVACID [Concomitant]

REACTIONS (100)
  - RENAL FAILURE [None]
  - ARTERITIS [None]
  - HEPATIC STEATOSIS [None]
  - APTYALISM [None]
  - COR PULMONALE CHRONIC [None]
  - DIVERTICULUM [None]
  - PERIODONTAL DISEASE [None]
  - OSTEITIS DEFORMANS [None]
  - ROTATOR CUFF SYNDROME [None]
  - MOUTH ULCERATION [None]
  - SPINAL OSTEOARTHRITIS [None]
  - TOOTH DISORDER [None]
  - PULPITIS DENTAL [None]
  - HAEMORRHAGE INTRACRANIAL [None]
  - GASTROOESOPHAGEAL REFLUX DISEASE [None]
  - STOMATITIS [None]
  - SEPSIS [None]
  - GINGIVAL SWELLING [None]
  - DRY EYE [None]
  - OSTEOPENIA [None]
  - CELLULITIS [None]
  - BONE FRAGMENTATION [None]
  - ENTEROCOCCAL INFECTION [None]
  - OSTEOPOROSIS [None]
  - GINGIVITIS [None]
  - ANGINA PECTORIS [None]
  - HYPOTENSION [None]
  - LUNG DISORDER [None]
  - DENTAL CARIES [None]
  - BONE EROSION [None]
  - GINGIVAL PAIN [None]
  - EXOSTOSIS [None]
  - OLIGURIA [None]
  - ORAL PAIN [None]
  - SENSORY LOSS [None]
  - ADRENAL INSUFFICIENCY [None]
  - HUMERUS FRACTURE [None]
  - ENCEPHALOPATHY [None]
  - DEAFNESS [None]
  - GASTRODUODENITIS [None]
  - SWELLING [None]
  - TYMPANIC MEMBRANE DISORDER [None]
  - UTERINE LEIOMYOMA [None]
  - OSTEOLYSIS [None]
  - MALOCCLUSION [None]
  - ASTHMA [None]
  - ESSENTIAL THROMBOCYTHAEMIA [None]
  - TOOTH ABSCESS [None]
  - TRICUSPID VALVE INCOMPETENCE [None]
  - ESCHERICHIA INFECTION [None]
  - HYPOAESTHESIA [None]
  - OEDEMA PERIPHERAL [None]
  - WEGENER'S GRANULOMATOSIS [None]
  - RECTAL HAEMORRHAGE [None]
  - VITREOUS DETACHMENT [None]
  - MIXED CONNECTIVE TISSUE DISEASE [None]
  - CHRONIC OBSTRUCTIVE PULMONARY DISEASE [None]
  - OCULAR HYPERAEMIA [None]
  - COLITIS ULCERATIVE [None]
  - VASCULITIS [None]
  - OSTEOARTHRITIS [None]
  - NEUTROPHIL COUNT INCREASED [None]
  - DIARRHOEA [None]
  - PERIODONTITIS [None]
  - BRONCHOPNEUMONIA [None]
  - FOOT FRACTURE [None]
  - THROMBOCYTOSIS [None]
  - FACIAL NEURALGIA [None]
  - MYELOPROLIFERATIVE DISORDER [None]
  - SCLERODERMA [None]
  - SINUSITIS [None]
  - STRESS FRACTURE [None]
  - BONE DISORDER [None]
  - OSTEOMYELITIS [None]
  - FIBROCYSTIC BREAST DISEASE [None]
  - PLEURAL EFFUSION [None]
  - POOR DENTAL CONDITION [None]
  - OSTEITIS [None]
  - WOUND INFECTION STAPHYLOCOCCAL [None]
  - HAEMANGIOMA [None]
  - TRANSIENT ISCHAEMIC ATTACK [None]
  - PAIN IN JAW [None]
  - LUMBAR SPINAL STENOSIS [None]
  - TRAUMATIC RENAL INJURY [None]
  - TELANGIECTASIA [None]
  - GOITRE [None]
  - OSTEONECROSIS OF JAW [None]
  - PAIN [None]
  - SWELLING FACE [None]
  - GINGIVAL INFECTION [None]
  - BONE PAIN [None]
  - GENERALISED OEDEMA [None]
  - METASTATIC NEOPLASM [None]
  - TOOTH INJURY [None]
  - SYSTEMIC LUPUS ERYTHEMATOSUS [None]
  - APPENDICITIS [None]
  - PELVIC FRACTURE [None]
  - UTERINE ENLARGEMENT [None]
  - JOINT DISLOCATION [None]
  - ENTERITIS [None]
